FAERS Safety Report 7313186-6 (Version None)
Quarter: 2011Q1

REPORT INFORMATION
  Report Type: 
  Country: None (occurrence: None)
  Receive Date: 20110215
  Receipt Date: 20110215
  Transmission Date: 20110831
  Serious: No
  Sender: FDA-Public Use
  Company Number: None

PATIENT
  Age: 61 Year
  Sex: Female
  Weight: 57.1532 kg

DRUGS (4)
  1. VENLAFAXINE HYDROCHLORIDE [Suspect]
     Dosage: 150 MG. ONCE A DAY
     Dates: start: 20100112
  2. VENLAFAXINE HYDROCHLORIDE [Suspect]
     Dosage: 150 MG. ONCE A DAY
     Dates: start: 20110110
  3. VENLAFAXINE HYDROCHLORIDE [Suspect]
     Dosage: 150 MG. ONCE A DAY
     Dates: start: 20100111
  4. VENLAFAXINE HYDROCHLORIDE [Suspect]
     Dosage: 150 MG. ONCE A DAY
     Dates: start: 20110109

REACTIONS (4)
  - PRODUCT SUBSTITUTION ISSUE [None]
  - HEADACHE [None]
  - TREMOR [None]
  - ANXIETY [None]
